FAERS Safety Report 17889141 (Version 2)
Quarter: 2020Q2

REPORT INFORMATION
  Report Type: Spontaneous
  Country: FR (occurrence: FR)
  Receive Date: 20200612
  Receipt Date: 20200626
  Transmission Date: 20200714
  Serious: Yes (Death, Hospitalization, Other)
  Sender: FDA-Public Use
  Company Number: NVSC2020FR161748

PATIENT
  Sex: Female

DRUGS (1)
  1. KYMRIAH [Suspect]
     Active Substance: TISAGENLECLEUCEL
     Indication: DIFFUSE LARGE B-CELL LYMPHOMA
     Dosage: UNK
     Route: 065
     Dates: start: 20191212

REACTIONS (10)
  - Mucosal inflammation [Unknown]
  - Hypercalcaemia [Unknown]
  - Cytokine release syndrome [Unknown]
  - Asthenia [Unknown]
  - Malignant neoplasm progression [Fatal]
  - Diffuse large B-cell lymphoma [Fatal]
  - Pyrexia [Unknown]
  - Opsoclonus myoclonus [Unknown]
  - Motor dysfunction [Unknown]
  - Bone lesion [Unknown]

NARRATIVE: CASE EVENT DATE: 20200114
